FAERS Safety Report 9815340 (Version 2)
Quarter: 2014Q1

REPORT INFORMATION
  Report Type: Spontaneous
  Country: BR (occurrence: BR)
  Receive Date: 20140114
  Receipt Date: 20140325
  Transmission Date: 20141002
  Serious: Yes (Other)
  Sender: FDA-Public Use
  Company Number: BR-ORION CORPORATION ORION PHARMA-ENTC2014-0005

PATIENT
  Age: 74 Year
  Sex: Male
  Weight: 73 kg

DRUGS (10)
  1. STALEVO [Suspect]
     Indication: PARKINSON^S DISEASE
     Dosage: STRENGTH: 100/25/200 MG
     Route: 048
     Dates: start: 201401
  2. PROLOPA [Suspect]
     Indication: PARKINSON^S DISEASE
     Dosage: STRENGTH: 100 MG
     Route: 048
     Dates: start: 2004, end: 201401
  3. PROLOPA [Suspect]
     Dosage: STRENGTH: 100 MG
     Route: 048
     Dates: start: 200402
  4. OMEPRAZOLE [Concomitant]
     Route: 065
  5. ENALAPRIL [Concomitant]
     Route: 065
  6. NIAR [Concomitant]
     Route: 065
  7. SIFROL [Concomitant]
     Route: 065
  8. AAS [Concomitant]
     Route: 065
  9. MOTILIUM [Concomitant]
     Route: 065
  10. DALMADORM [Concomitant]
     Route: 065

REACTIONS (4)
  - Pharyngeal oedema [Recovering/Resolving]
  - Dry mouth [Recovering/Resolving]
  - Mouth ulceration [Recovering/Resolving]
  - Local swelling [Recovering/Resolving]
